FAERS Safety Report 12736666 (Version 1)
Quarter: 2016Q3

REPORT INFORMATION
  Report Type: Spontaneous
  Country: US (occurrence: US)
  Receive Date: 20160909
  Receipt Date: 20160909
  Transmission Date: 20161109
  Serious: No
  Sender: FDA-Public Use
  Company Number: None

PATIENT
  Age: 61 Year
  Sex: Female

DRUGS (1)
  1. ENBREL [Suspect]
     Active Substance: ETANERCEPT
     Indication: RHEUMATOID ARTHRITIS
     Dosage: 50MG ONCE A SQ
     Route: 058
     Dates: start: 20160315

REACTIONS (5)
  - Bone pain [None]
  - Arthralgia [None]
  - Motor dysfunction [None]
  - Musculoskeletal pain [None]
  - Insomnia [None]

NARRATIVE: CASE EVENT DATE: 20160909
